FAERS Safety Report 23744664 (Version 1)
Quarter: 2024Q2

REPORT INFORMATION
  Report Type: Spontaneous
  Country: HR (occurrence: HR)
  Receive Date: 20240415
  Receipt Date: 20240415
  Transmission Date: 20240716
  Serious: Yes (Other)
  Sender: FDA-Public Use
  Company Number: None

PATIENT
  Age: 46 Year
  Sex: Male

DRUGS (2)
  1. ATROPINE [Suspect]
     Active Substance: ATROPINE\ATROPINE SULFATE
     Indication: Product used for unknown indication
     Dosage: UNK
     Route: 065
     Dates: start: 20240220, end: 20240220
  2. NAPHAZOLINE HYDROCHLORIDE [Suspect]
     Active Substance: NAPHAZOLINE HYDROCHLORIDE
     Indication: Product used for unknown indication
     Dosage: 1 ML OF 0.1% SOLUTION CONTAINS 1 MG OF NAPHAZOLINE HYDROCHLORIDE
     Route: 045
     Dates: start: 202402, end: 202402

REACTIONS (4)
  - Blood pressure diastolic increased [Unknown]
  - Blood pressure increased [Unknown]
  - Heart rate decreased [Unknown]
  - Overdose [Unknown]

NARRATIVE: CASE EVENT DATE: 20240201
